APPROVED DRUG PRODUCT: SORILUX
Active Ingredient: CALCIPOTRIENE
Strength: 0.005%
Dosage Form/Route: AEROSOL, FOAM;TOPICAL
Application: N022563 | Product #001
Applicant: MAYNE PHARMA LLC
Approved: Oct 6, 2010 | RLD: Yes | RS: Yes | Type: RX

PATENTS:
Patent 8629128 | Expires: May 26, 2026
Patent 8263580 | Expires: May 7, 2028
Patent 8629128 | Expires: May 26, 2026
Patent 8629128 | Expires: May 26, 2026
Patent 8263580 | Expires: May 7, 2028